FAERS Safety Report 7238694 (Version 9)
Quarter: 2012Q4

REPORT INFORMATION
  Report Type: 
  Country: US (occurrence: US)
  Receive Date: 20100106
  Receipt Date: 20121217
  Transmission Date: 20130627
  Serious: Yes (Hospitalization, Other)
  Sender: FDA-Public Use
  Company Number: US-009507513-1001USA00052

PATIENT

DRUGS (4)
  1. FOSAMAX [Suspect]
     Indication: OSTEOPOROSIS
     Dosage: 10 mg, qd
     Route: 048
     Dates: start: 1998, end: 200504
  2. FOSAMAX [Suspect]
     Indication: OSTEOPENIA
     Dosage: 70 mg, QW
     Route: 048
     Dates: start: 20080206, end: 20091010
  3. FOSAMAX PLUS D [Suspect]
     Indication: OSTEOPOROSIS
     Dosage: 70 mg/2800
     Route: 048
     Dates: start: 200505, end: 20090225
  4. FOSAMAX PLUS D [Suspect]
     Indication: OSTEOPENIA

REACTIONS (42)
  - Back pain [Unknown]
  - Nausea [Recovered/Resolved]
  - Abdominal pain lower [Unknown]
  - Femur fracture [Recovered/Resolved]
  - Catheterisation cardiac [Unknown]
  - Fall [Unknown]
  - Fracture delayed union [Unknown]
  - Hypertension [Recovering/Resolving]
  - Arthropathy [Unknown]
  - Coronary artery disease [Unknown]
  - Blood glucose increased [Not Recovered/Not Resolved]
  - Low turnover osteopathy [Unknown]
  - Dyslipidaemia [Unknown]
  - Hypokalaemia [Unknown]
  - Benign neoplasm of thyroid gland [Unknown]
  - Rectocele [Not Recovered/Not Resolved]
  - Urinary tract infection [Unknown]
  - Stress urinary incontinence [Unknown]
  - Cystocele [Unknown]
  - Muscular weakness [Unknown]
  - Sciatica [Unknown]
  - Wound [Recovering/Resolving]
  - Fatigue [Unknown]
  - Limb injury [Unknown]
  - Laceration [Unknown]
  - Pubis fracture [Unknown]
  - Osteoarthritis [Unknown]
  - Pseudarthrosis [Unknown]
  - Joint stiffness [Unknown]
  - Goitre [Unknown]
  - Intervertebral disc degeneration [Unknown]
  - Intervertebral disc protrusion [Unknown]
  - Onychomycosis [Unknown]
  - Cardiac stress test abnormal [Unknown]
  - Anxiety [Unknown]
  - Hyperglycaemia [Unknown]
  - Pain in extremity [Unknown]
  - Arthralgia [Unknown]
  - Gastrooesophageal reflux disease [Unknown]
  - Muscle spasms [Unknown]
  - Vomiting [Recovered/Resolved]
  - Diarrhoea [Unknown]
